FAERS Safety Report 7641756-4 (Version None)
Quarter: 2011Q3

REPORT INFORMATION
  Report Type: 
  Country: None (occurrence: None)
  Receive Date: 20110728
  Receipt Date: 20110725
  Transmission Date: 20111222
  Serious: Yes (Hospitalization)
  Sender: FDA-Public Use
  Company Number: US-ROCHE-760971

PATIENT
  Age: 54 Year
  Sex: Male
  Weight: 72 kg

DRUGS (23)
  1. RIBAVIRIN [Suspect]
     Route: 048
     Dates: start: 20100528
  2. ACETAMINOPHEN [Concomitant]
     Indication: HEADACHE
     Dates: start: 20100612, end: 20101201
  3. GABAPENTIN [Concomitant]
     Dates: start: 20100819
  4. LOCORTEN-VIOFORM [Concomitant]
     Indication: OTITIS MEDIA
     Dates: start: 20101013, end: 20101018
  5. IBUPROFEN [Concomitant]
     Dates: start: 20100811
  6. GABAPENTIN [Concomitant]
     Dates: start: 20100813, end: 20100818
  7. DIPHENHYDRAMINE HYDROCHLORIDE [Concomitant]
     Indication: INSOMNIA
     Dosage: DRUG REPORTED: DOZOL, AS REQUIRED
     Dates: start: 20100621, end: 20100621
  8. PEGINTERFERON ALFA-2A [Suspect]
     Route: 058
     Dates: start: 20100525, end: 20110119
  9. CEPHALEXIN MONOHYDRATE [Concomitant]
     Dosage: INDICATION:RIGHT AXILLA
     Dates: start: 20100625, end: 20100704
  10. HYDROCORTISONE [Concomitant]
     Dates: start: 20100915, end: 20101207
  11. BACTROBAN [Concomitant]
     Indication: WOUND INFECTION
     Dates: start: 20101208
  12. CITALOPRAM HYDROBROMIDE [Concomitant]
     Indication: DEPRESSION
  13. TRIAZOLAM [Concomitant]
     Indication: INSOMNIA
     Dates: start: 20110105
  14. CHLORMEZANONE [Concomitant]
     Indication: INSOMNIA
     Dates: start: 20100803, end: 20101207
  15. CEFUROXIME AXETIL [Concomitant]
     Indication: OTITIS MEDIA
     Dates: start: 20101013, end: 20101016
  16. FLUOCINONIDE [Concomitant]
     Dates: start: 20101209
  17. RITONAVIR [Suspect]
     Dosage: FORM: SOFT GELATIN CAPSULES
     Route: 048
     Dates: start: 20100525, end: 20100818
  18. BLINDED ABT-450 [Suspect]
     Route: 048
     Dates: start: 20100525, end: 20100818
  19. BISMUTH SUBSALICYLATE IN OIL INJ [Concomitant]
     Dates: start: 20100903, end: 20100905
  20. ZOLPIDEM TARTRATE [Concomitant]
     Indication: INSOMNIA
     Dates: start: 20101209, end: 20110104
  21. PROPRANOLOL HCL [Concomitant]
     Dates: start: 20101208
  22. PEGINTERFERON ALFA-2A [Suspect]
     Route: 058
     Dates: start: 20110205
  23. VICODIN [Concomitant]
     Dosage: STRENGTH 325/5
     Dates: start: 20100819

REACTIONS (4)
  - HAEMOGLOBIN DECREASED [None]
  - NO THERAPEUTIC RESPONSE [None]
  - MIGRAINE [None]
  - DEHYDRATION [None]
